FAERS Safety Report 10057420 (Version 1)
Quarter: 2014Q2

REPORT INFORMATION
  Report Type: Spontaneous
  Country: IT (occurrence: IT)
  Receive Date: 20140403
  Receipt Date: 20140403
  Transmission Date: 20141212
  Serious: Yes (Hospitalization)
  Sender: FDA-Public Use
  Company Number: IT-TEVA-473176ISR

PATIENT
  Age: 47 Year
  Sex: Male

DRUGS (3)
  1. RIBAVIRINA [Suspect]
     Indication: HEPATITIS C ANTIBODY POSITIVE
     Dates: start: 20130321, end: 20130627
  2. INCIVO [Suspect]
     Indication: HEPATITIS C
     Dosage: 6 DOSAGE FORMS DAILY;
     Route: 048
     Dates: start: 20130321, end: 20130611
  3. PEGASYS [Suspect]
     Indication: HEPATITIS C ANTIBODY POSITIVE

REACTIONS (3)
  - Anaemia [Unknown]
  - Rash erythematous [Unknown]
  - Impetigo [Unknown]
